FAERS Safety Report 10025419 (Version 1)
Quarter: 2014Q1

REPORT INFORMATION
  Report Type: Spontaneous
  Country: US (occurrence: None)
  Receive Date: 20140304
  Receipt Date: 20140304
  Transmission Date: 20141002
  Serious: Yes (Hospitalization, Other)
  Sender: FDA-Public Use
  Company Number: RB-50501-2013

PATIENT
  Age: 56 Year
  Sex: Male

DRUGS (1)
  1. SUBOXONE [Suspect]
     Indication: DRUG DEPENDENCE
     Dosage: (DOSING DETAILS UNKNOWN; TOOK ONE TABLET SUBLINGUAL)?
     Route: 060
     Dates: start: 200808, end: 200808

REACTIONS (3)
  - Convulsion [None]
  - Bipolar disorder [None]
  - Depression [None]
